FAERS Safety Report 4649575-8 (Version None)
Quarter: 2005Q2

REPORT INFORMATION
  Report Type: 
  Country: None (occurrence: None)
  Receive Date: 20050428
  Receipt Date: 20050428
  Transmission Date: 20051028
  Serious: No
  Sender: FDA-Public Use
  Company Number: None

PATIENT
  Age: 54 Year
  Sex: Male

DRUGS (4)
  1. VYTORIN [Suspect]
  2. CYCLOSPORINE [Suspect]
  3. GEMFIBROZIL [Suspect]
     Dosage: 300 MG BID
  4. SIMVASTATIN [Concomitant]

REACTIONS (2)
  - LIVER FUNCTION TEST ABNORMAL [None]
  - MYALGIA [None]
